FAERS Safety Report 5656581-3 (Version None)
Quarter: 2008Q1

REPORT INFORMATION
  Report Type: 
  Country: None (occurrence: None)
  Receive Date: 20080310
  Receipt Date: 20080225
  Transmission Date: 20080703
  Serious: Yes (Death, Congenital Anomaly)
  Sender: FDA-Public Use
  Company Number: US-JNJFOC-20080206468

PATIENT
  Sex: Male
  Weight: 2.77 kg

DRUGS (4)
  1. DITROPAN [Suspect]
     Indication: DRUG EXPOSURE DURING PREGNANCY
  2. NEURONTIN [Concomitant]
     Indication: DRUG EXPOSURE DURING PREGNANCY
     Route: 064
  3. PROVIGIL [Concomitant]
     Indication: DRUG EXPOSURE DURING PREGNANCY
     Route: 064
  4. CRESTOR [Concomitant]
     Indication: DRUG EXPOSURE DURING PREGNANCY
     Route: 064

REACTIONS (7)
  - BONE DISORDER [None]
  - CONGENITAL MUSCULOSKELETAL ANOMALY [None]
  - DRUG EXPOSURE DURING PREGNANCY [None]
  - LIMB HYPOPLASIA CONGENITAL [None]
  - PULMONARY HYPOPLASIA [None]
  - SCOLIOSIS [None]
  - TALIPES [None]
